FAERS Safety Report 25824157 (Version 1)
Quarter: 2025Q3

REPORT INFORMATION
  Report Type: Spontaneous
  Country: CA (occurrence: CA)
  Receive Date: 20250919
  Receipt Date: 20250919
  Transmission Date: 20251021
  Serious: Yes (Other)
  Sender: RANBAXY
  Company Number: CA-SUN PHARMACEUTICAL INDUSTRIES LTD-2025R1-526795

PATIENT
  Age: 77 Year
  Sex: Female

DRUGS (2)
  1. FUROSEMIDE [Suspect]
     Active Substance: FUROSEMIDE
     Indication: Lymphoedema
     Route: 030
  2. OCTREOTIDE [Suspect]
     Active Substance: OCTREOTIDE
     Indication: Lymphoedema
     Route: 030

REACTIONS (1)
  - Therapy non-responder [Unknown]
